FAERS Safety Report 23364703 (Version 1)
Quarter: 2024Q1

REPORT INFORMATION
  Report Type: Report from Study
  Country: US (occurrence: US)
  Receive Date: 20240104
  Receipt Date: 20240104
  Transmission Date: 20240409
  Serious: No
  Sender: FDA-Public Use
  Company Number: US-ALXN-202312USA001601US

PATIENT

DRUGS (1)
  1. STRENSIQ [Suspect]
     Active Substance: ASFOTASE ALFA
     Indication: Product used for unknown indication
     Dosage: UNK
     Route: 065

REACTIONS (7)
  - Product dose omission issue [Unknown]
  - Depression [Unknown]
  - Blood glucose increased [Unknown]
  - Alanine aminotransferase increased [Unknown]
  - Vitamin B6 decreased [Unknown]
  - Blood parathyroid hormone increased [Unknown]
  - Lipoatrophy [Unknown]

NARRATIVE: CASE EVENT DATE: 20230830
